FAERS Safety Report 7591368-6 (Version None)
Quarter: 2011Q3

REPORT INFORMATION
  Report Type: 
  Country: None (occurrence: None)
  Receive Date: 20110706
  Receipt Date: 20110629
  Transmission Date: 20111222
  Serious: No
  Sender: FDA-Public Use
  Company Number: US-BIOGENIDEC-2011BI024206

PATIENT
  Age: 59 Year
  Sex: Female

DRUGS (2)
  1. TYSABRI [Suspect]
     Indication: MULTIPLE SCLEROSIS
     Route: 042
     Dates: start: 20110322
  2. NUVIGIL [Concomitant]
     Indication: FATIGUE

REACTIONS (4)
  - FALL [None]
  - CARPAL TUNNEL DECOMPRESSION [None]
  - INSOMNIA [None]
  - NAUSEA [None]
